FAERS Safety Report 10882007 (Version 1)
Quarter: 2015Q1

REPORT INFORMATION
  Report Type: Spontaneous
  Country: GR (occurrence: GR)
  Receive Date: 20150303
  Receipt Date: 20150303
  Transmission Date: 20150721
  Serious: Yes (Hospitalization, Disabling)
  Sender: FDA-Public Use
  Company Number: GR-PFIZER INC-2015070102

PATIENT
  Age: 37 Year
  Sex: Female

DRUGS (10)
  1. FARMORUBICIN [Suspect]
     Active Substance: EPIRUBICIN HYDROCHLORIDE
     Indication: BREAST CANCER STAGE III
     Dosage: CYCLIC (4 CYCLES)
     Route: 042
     Dates: start: 20020517, end: 20020717
  2. ENDOXAN [Suspect]
     Active Substance: CYCLOPHOSPHAMIDE
     Indication: BREAST CANCER STAGE III
     Dosage: CYCLIC (4 CYCLES)
     Dates: start: 20020517, end: 20020717
  3. MEDROL [Concomitant]
     Active Substance: METHYLPREDNISOLONE
     Dosage: TABLET
     Route: 048
     Dates: start: 200202
  4. GRANOCYTE [Concomitant]
     Active Substance: LENOGRASTIM
     Dosage: UNK
     Route: 042
     Dates: start: 200202
  5. ARVEKAP [Concomitant]
     Active Substance: TRIPTORELIN
     Indication: BREAST CANCER STAGE III
     Dosage: 3.75 MG, MONTHLY
     Dates: start: 20020722
  6. ARVEKAP [Concomitant]
     Active Substance: TRIPTORELIN
     Dosage: 11.25 MG, MONTHLY
     Dates: start: 20060512, end: 20061223
  7. AROMASIN [Concomitant]
     Active Substance: EXEMESTANE
     Indication: BREAST CANCER STAGE III
     Dosage: 25 MG, DAILY
     Dates: start: 20060512, end: 20061223
  8. ZOFRON [Concomitant]
     Active Substance: ONDANSETRON
     Dosage: TABLET
     Route: 048
     Dates: start: 200202
  9. NOLVADEX [Concomitant]
     Active Substance: TAMOXIFEN CITRATE
     Indication: BREAST CANCER STAGE III
     Dosage: 20 MG, DAILY
     Dates: start: 20020722, end: 20060512
  10. TAXOTERE [Suspect]
     Active Substance: DOCETAXEL
     Indication: BREAST CANCER STAGE III
     Dosage: CYCLIC (4 CYCLES)
     Route: 042
     Dates: start: 20020222, end: 20020426

REACTIONS (8)
  - Arthralgia [Unknown]
  - Peripheral venous disease [Not Recovered/Not Resolved]
  - Arthralgia [Not Recovered/Not Resolved]
  - Arthropathy [Not Recovered/Not Resolved]
  - Patellofemoral pain syndrome [Not Recovered/Not Resolved]
  - Thrombophlebitis [Not Recovered/Not Resolved]
  - Intervertebral disc space narrowing [Not Recovered/Not Resolved]
  - Spondyloarthropathy [Not Recovered/Not Resolved]

NARRATIVE: CASE EVENT DATE: 200202
